FAERS Safety Report 23977563 (Version 2)
Quarter: 2024Q2

REPORT INFORMATION
  Report Type: Spontaneous
  Country: LT (occurrence: LT)
  Receive Date: 20240614
  Receipt Date: 20240620
  Transmission Date: 20240715
  Serious: Yes (Other)
  Sender: FDA-Public Use
  Company Number: LT-EGIS-HUN-2024-0494

PATIENT
  Age: 27 Year
  Sex: Female

DRUGS (4)
  1. SERTRALINE [Suspect]
     Active Substance: SERTRALINE HYDROCHLORIDE
     Indication: Emotional disorder
     Dosage: UNK
     Route: 065
  2. SERTRALINE [Suspect]
     Active Substance: SERTRALINE HYDROCHLORIDE
     Indication: Antipsychotic therapy
  3. FLUPENTIXOL [Suspect]
     Active Substance: FLUPENTIXOL
     Indication: Emotional disorder
     Dosage: UNK
     Route: 065
  4. FLUPENTIXOL [Suspect]
     Active Substance: FLUPENTIXOL
     Indication: Antipsychotic therapy

REACTIONS (2)
  - Electrocardiogram QT prolonged [Recovered/Resolved]
  - Product use in unapproved indication [Unknown]
